FAERS Safety Report 9034764 (Version 1)
Quarter: 2013Q1

REPORT INFORMATION
  Report Type: Spontaneous
  Country: IE (occurrence: None)
  Receive Date: 20130118
  Receipt Date: 20130118
  Transmission Date: 20140127
  Serious: Yes (Hospitalization, Other)
  Sender: FDA-Public Use
  Company Number: IMP_06132_2013

PATIENT
  Age: 49 Year
  Sex: Female

DRUGS (2)
  1. CABERGOLINE [Suspect]
     Indication: PROLACTINOMA
     Dosage: PER WEEK
  2. DEXAMETHASONE [Suspect]
     Indication: PROLACTINOMA
     Dosage: (CUMMULATIVE DOSE OF 65 MG), (SHORT AND LOW CUMMULATIVE DOSE)

REACTIONS (5)
  - Prolactinoma [None]
  - Neoplasm recurrence [None]
  - No therapeutic response [None]
  - Osteonecrosis [None]
  - Osteosclerosis [None]
